FAERS Safety Report 6095066-X (Version None)
Quarter: 2009Q1

REPORT INFORMATION
  Report Type: 
  Country: None (occurrence: None)
  Receive Date: 20090227
  Receipt Date: 20080111
  Transmission Date: 20090719
  Serious: No
  Sender: FDA-Public Use
  Company Number: A0702743A

PATIENT
  Age: 37 Year
  Sex: Female

DRUGS (5)
  1. LAMICTAL [Suspect]
     Dosage: 300MG TWICE PER DAY
     Route: 048
     Dates: start: 20070101
  2. XANAX [Concomitant]
  3. MULTI-VITAMIN [Concomitant]
  4. MECLIZINE [Concomitant]
  5. IBUPROFEN [Concomitant]

REACTIONS (3)
  - DIPLOPIA [None]
  - DIZZINESS [None]
  - FALL [None]
